FAERS Safety Report 8738337 (Version 3)
Quarter: 2012Q4

REPORT INFORMATION
  Report Type: 
  Country: DE (occurrence: DE)
  Receive Date: 20120823
  Receipt Date: 20120913
  Transmission Date: 20130627
  Serious: Yes (Life-Threatening, Hospitalization)
  Sender: FDA-Public Use
  Company Number: DE-JNJFOC-20120807321

PATIENT
  Age: 60 Year
  Sex: Male

DRUGS (4)
  1. SIMPONI [Suspect]
     Indication: PSORIATIC ARTHROPATHY
     Route: 058
     Dates: start: 201004, end: 20120407
  2. CARBAMAZEPIN 200 [Concomitant]
     Indication: TRIGEMINAL NEURALGIA
     Route: 048
     Dates: start: 201203
  3. SANDOCAL D FORTE [Concomitant]
     Indication: OSTEOPENIA
     Route: 065
  4. IBUPROFEN [Concomitant]
     Dosage: on demand
     Route: 065

REACTIONS (6)
  - Gamma-glutamyltransferase increased [Recovered/Resolved]
  - Toxicity to various agents [Recovered/Resolved]
  - Bronchitis chronic [Recovered/Resolved]
  - Alveolitis allergic [Recovered/Resolved]
  - Respiratory failure [Recovered/Resolved]
  - Transaminases increased [Recovered/Resolved]
